FAERS Safety Report 21863890 (Version 2)
Quarter: 2023Q1

REPORT INFORMATION
  Report Type: Report from Study
  Country: US (occurrence: US)
  Receive Date: 20230116
  Receipt Date: 20230325
  Transmission Date: 20230418
  Serious: No
  Sender: FDA-Public Use
  Company Number: US-ABBVIE-4240725

PATIENT
  Age: 24 Year
  Sex: Female
  Weight: 72.574 kg

DRUGS (2)
  1. HUMIRA [Suspect]
     Active Substance: ADALIMUMAB
     Indication: Juvenile idiopathic arthritis
     Route: 058
     Dates: start: 20221121
  2. HUMIRA [Suspect]
     Active Substance: ADALIMUMAB
     Indication: Rheumatoid arthritis

REACTIONS (3)
  - COVID-19 [Recovered/Resolved]
  - Presyncope [Unknown]
  - Glassy eyes [Unknown]

NARRATIVE: CASE EVENT DATE: 20221127
